FAERS Safety Report 5952165-8 (Version None)
Quarter: 2008Q4

REPORT INFORMATION
  Report Type: 
  Country: None (occurrence: None)
  Receive Date: 20081113
  Receipt Date: 20080729
  Transmission Date: 20090506
  Serious: No
  Sender: FDA-Public Use
  Company Number: A0739910A

PATIENT
  Age: 75 Year
  Sex: Male

DRUGS (10)
  1. COREG [Suspect]
     Dosage: 12.5MG TWICE PER DAY
     Route: 048
     Dates: start: 19990101
  2. ALTACE [Concomitant]
  3. ASPIRIN [Concomitant]
  4. SELENIUM [Concomitant]
  5. MULTI-VITAMIN [Concomitant]
  6. LUTEIN [Concomitant]
  7. GINKO BILOBA [Concomitant]
  8. GLUCOSAMINE/CHONDROITIN [Concomitant]
  9. COENZYME Q10 [Concomitant]
  10. FISH OIL [Concomitant]

REACTIONS (5)
  - DIZZINESS [None]
  - FATIGUE [None]
  - MUSCLE SPASMS [None]
  - PAIN [None]
  - WEIGHT INCREASED [None]
